FAERS Safety Report 13997333 (Version 3)
Quarter: 2018Q1

REPORT INFORMATION
  Report Type: Report from Study
  Country: DE (occurrence: DE)
  Receive Date: 20170921
  Receipt Date: 20180119
  Transmission Date: 20180508
  Serious: Yes (Hospitalization, Other)
  Sender: FDA-Public Use
  Company Number: DE-BRISTOL-MYERS SQUIBB COMPANY-BMS-2017-081846

PATIENT
  Age: 60 Year
  Sex: Male

DRUGS (1)
  1. BELATACEPT [Suspect]
     Active Substance: BELATACEPT
     Indication: IMMUNOSUPPRESSANT DRUG THERAPY
     Dosage: 375 MG, UNK
     Route: 042
     Dates: start: 20170321, end: 20170808

REACTIONS (1)
  - Chronic fatigue syndrome [Recovered/Resolved]

NARRATIVE: CASE EVENT DATE: 20170911
